FAERS Safety Report 7553714-9 (Version None)
Quarter: 2011Q2

REPORT INFORMATION
  Report Type: 
  Country: None (occurrence: None)
  Receive Date: 20110614
  Receipt Date: 20110614
  Transmission Date: 20111010
  Serious: Yes (Disabling, Other)
  Sender: FDA-Public Use
  Company Number: None

PATIENT
  Sex: Male
  Weight: 106.5953 kg

DRUGS (1)
  1. ZOCOR [Suspect]
     Indication: BLOOD CHOLESTEROL
     Dosage: PO
     Route: 048
     Dates: start: 19950101, end: 20090601

REACTIONS (3)
  - MUSCLE ENZYME INCREASED [None]
  - MYALGIA [None]
  - MUSCULAR WEAKNESS [None]
